FAERS Safety Report 7823411-0 (Version None)
Quarter: 2011Q4

REPORT INFORMATION
  Report Type: 
  Country: None (occurrence: None)
  Receive Date: 20111014
  Receipt Date: 20111004
  Transmission Date: 20120403
  Serious: Yes (Disabling, Other)
  Sender: FDA-Public Use
  Company Number: AUR-APL-2011-05377

PATIENT
  Age: 72 Year
  Sex: Female
  Weight: 58.05 kg

DRUGS (10)
  1. NORVASC [Suspect]
     Indication: HYPERTENSION
     Dosage: (7.5 MG, 1 D), ORAL
     Route: 048
     Dates: start: 20100101
  2. LISINOPRIL [Suspect]
     Indication: HYPERTENSION
  3. PLAVIX [Suspect]
     Indication: ANTICOAGULANT THERAPY
  4. ZANTAC [Suspect]
     Indication: BURN OESOPHAGEAL
     Dosage: (600 MG, 1 D),
  5. ZANTAC [Suspect]
     Indication: GASTROOESOPHAGEAL REFLUX DISEASE
     Dosage: (600 MG, 1 D),
  6. CATAPRES [Suspect]
     Indication: HYPERTENSION
     Dosage: (1 WK), TRANSDERMAL
     Route: 062
     Dates: start: 20100101
  7. METOPROLOL TARTRATE [Suspect]
     Dosage: 40 MG (20 MG, 2 IN 1 D), ORAL
     Route: 048
     Dates: start: 20100101
  8. XANAX [Suspect]
     Indication: ANXIETY
     Dosage: 1 AND 1/4 MG TABLETS ( BY SPLITTING 1MG) (1 D), ORAL   3/4 TABLET (1 D), ORAL
     Route: 048
     Dates: start: 20100608
  9. CELEXA [Suspect]
     Indication: ANXIETY
     Dosage: (120 MG),    (10 MG),
  10. BENICAR [Suspect]
     Indication: HYPERTENSION
     Dosage: (40 MG, 1 D),
     Dates: start: 20100101

REACTIONS (10)
  - DECREASED APPETITE [None]
  - TONGUE DISORDER [None]
  - WEIGHT DECREASED [None]
  - TONGUE DRY [None]
  - BURN OESOPHAGEAL [None]
  - ANXIETY [None]
  - DRY MOUTH [None]
  - GASTROINTESTINAL DISORDER [None]
  - DRUG DEPENDENCE [None]
  - HAIR TEXTURE ABNORMAL [None]
